FAERS Safety Report 13587240 (Version 1)
Quarter: 2017Q2

REPORT INFORMATION
  Report Type: Spontaneous
  Country: US (occurrence: US)
  Receive Date: 20170526
  Receipt Date: 20170526
  Transmission Date: 20170830
  Serious: No
  Sender: FDA-Public Use
  Company Number: US-TARO-2017TAR00010

PATIENT
  Sex: Male

DRUGS (1)
  1. CICLOPIROX OLAMINE CREAM USP 0.77% [Suspect]
     Active Substance: CICLOPIROX OLAMINE
     Indication: TINEA CRURIS
     Dosage: UNK
     Dates: start: 201701

REACTIONS (1)
  - Drug ineffective [Not Recovered/Not Resolved]

NARRATIVE: CASE EVENT DATE: 20170102
